FAERS Safety Report 19513083 (Version 2)
Quarter: 2021Q3

REPORT INFORMATION
  Report Type: Spontaneous
  Country: US (occurrence: US)
  Receive Date: 20210709
  Receipt Date: 20210915
  Transmission Date: 20211014
  Serious: No
  Sender: FDA-Public Use
  Company Number: US-BAYER-2021-170876

PATIENT
  Age: 53 Year
  Sex: Female
  Weight: 96.6 kg

DRUGS (3)
  1. GADAVIST [Suspect]
     Active Substance: GADOBUTROL
     Indication: HEADACHE
     Dosage: 9 ML, ONCE
     Route: 042
     Dates: start: 20210628, end: 20210628
  2. GADAVIST [Suspect]
     Active Substance: GADOBUTROL
     Indication: DIZZINESS
  3. GADAVIST [Suspect]
     Active Substance: GADOBUTROL
     Indication: MAGNETIC RESONANCE IMAGING
     Dosage: 10 ML (LEFT FOREARM)
     Dates: start: 20210628, end: 20210628

REACTIONS (1)
  - Vomiting [Recovered/Resolved]

NARRATIVE: CASE EVENT DATE: 20210628
